FAERS Safety Report 24854092 (Version 1)
Quarter: 2025Q1

REPORT INFORMATION
  Report Type: Spontaneous
  Country: ES (occurrence: ES)
  Receive Date: 20250117
  Receipt Date: 20250117
  Transmission Date: 20250408
  Serious: Yes (Death, Life-Threatening, Other)
  Sender: AUROBINDO
  Company Number: ES-AEMPS-1613928

PATIENT
  Age: 77 Year
  Sex: Male

DRUGS (4)
  1. MEROPENEM [Suspect]
     Active Substance: MEROPENEM
     Indication: Bacteraemia
     Route: 065
     Dates: start: 20230117
  2. CEFTAZIDIME [Suspect]
     Active Substance: CEFTAZIDIME
     Indication: Bacteraemia
     Route: 042
     Dates: start: 20230116
  3. CEFAZOLIN [Suspect]
     Active Substance: CEFAZOLIN
     Indication: Bacteraemia
     Route: 042
     Dates: start: 20230116
  4. CEFTRIAXONE [Suspect]
     Active Substance: CEFTRIAXONE
     Indication: Bacteraemia
     Route: 042
     Dates: start: 20230126

REACTIONS (2)
  - Neurotoxicity [Fatal]
  - Drug-induced liver injury [Fatal]

NARRATIVE: CASE EVENT DATE: 20230116
